FAERS Safety Report 13302961 (Version 1)
Quarter: 2017Q1

REPORT INFORMATION
  Report Type: Spontaneous
  Country: ES (occurrence: ES)
  Receive Date: 20170307
  Receipt Date: 20170307
  Transmission Date: 20170428
  Serious: Yes (Death)
  Sender: FDA-Public Use
  Company Number: ES-PFIZER INC-2017094003

PATIENT
  Age: 68 Year
  Sex: Male
  Weight: 79 kg

DRUGS (2)
  1. CITARABINA ACCORD [Suspect]
     Active Substance: CYTARABINE
     Indication: MYELOID LEUKAEMIA
     Dosage: 346 MG, CYCLIC
     Route: 042
     Dates: start: 20160901, end: 20160907
  2. ZAVEDOS [Suspect]
     Active Substance: IDARUBICIN
     Indication: MYELOID LEUKAEMIA
     Dosage: 20.8 MG, CYCLIC
     Route: 042
     Dates: start: 20160901, end: 20160903

REACTIONS (1)
  - Hepatitis fulminant [Fatal]

NARRATIVE: CASE EVENT DATE: 20160912
